FAERS Safety Report 5492759-X (Version None)
Quarter: 2007Q4

REPORT INFORMATION
  Report Type: 
  Country: None (occurrence: None)
  Receive Date: 20071023
  Receipt Date: 20071009
  Transmission Date: 20080405
  Serious: Yes (Other)
  Sender: FDA-Public Use
  Company Number: PHEH2007US13490

PATIENT
  Sex: Female

DRUGS (1)
  1. ZELNORM [Suspect]
     Dates: start: 20050101, end: 20070301

REACTIONS (2)
  - CARDIOMEGALY [None]
  - PNEUMONIA [None]
